FAERS Safety Report 15147963 (Version 3)
Quarter: 2019Q1

REPORT INFORMATION
  Report Type: Spontaneous
  Country: SK (occurrence: SK)
  Receive Date: 20180716
  Receipt Date: 20190128
  Transmission Date: 20190417
  Serious: Yes (Other)
  Sender: FDA-Public Use
  Company Number: PHHY2018SK007089

PATIENT
  Age: 70 Year
  Sex: Female

DRUGS (3)
  1. PACLITAX NAB [Suspect]
     Active Substance: PACLITAXEL
     Indication: PANCREATIC CARCINOMA METASTATIC
     Dosage: 125 MG/M2, UNK (2 WEEKS OF THERAPY, ONE WEEK PAUSE AND SUBSEQUENTLY 2 WEEKS OF THERAPY)
     Route: 041
     Dates: start: 20160905
  2. GEMCITABINE [Suspect]
     Active Substance: GEMCITABINE\GEMCITABINE HYDROCHLORIDE
     Dosage: 1000 MILLIGRAM/SQ. METER
     Route: 042
  3. GEMCITABINE [Suspect]
     Active Substance: GEMCITABINE\GEMCITABINE HYDROCHLORIDE
     Indication: PANCREATIC CARCINOMA METASTATIC
     Dosage: 1000 MG/M2, UNK (2 WEEKS OF THERAPY, ONE WEEK PAUSE AND SUBSEQUENTLY 2 WEEKS OF THERAPY)
     Route: 065
     Dates: start: 20160905

REACTIONS (4)
  - Pancytopenia [Recovering/Resolving]
  - Thrombocytopenia [Recovering/Resolving]
  - Haematotoxicity [Recovering/Resolving]
  - Leukopenia [Recovering/Resolving]

NARRATIVE: CASE EVENT DATE: 2016
